FAERS Safety Report 8182947 (Version 3)
Quarter: 2014Q1

REPORT INFORMATION
  Report Type: Report from Study
  Country: US (occurrence: US)
  Receive Date: 20111017
  Receipt Date: 20140328
  Transmission Date: 20141002
  Serious: Yes (Hospitalization)
  Sender: FDA-Public Use
  Company Number: US-ACTELION-A-US2011-55425

PATIENT
  Age: 73 Year
  Sex: Female

DRUGS (9)
  1. TRACLEER [Suspect]
     Indication: PULMONARY ARTERIAL HYPERTENSION
     Dosage: 125 MG, UNK
     Route: 048
     Dates: start: 201002
  2. BYSTOLIC [Concomitant]
     Dosage: 10 MG, UNK
  3. LASIX [Concomitant]
     Dosage: 40 MG, UNK
  4. LEXAPRO [Concomitant]
     Dosage: 20 MG, UNK
  5. LIPITOR [Concomitant]
     Dosage: 80 MG, OD
  6. NIASPAN [Concomitant]
  7. NORVASC [Concomitant]
     Dosage: 10 MG, UNK
  8. POTASSIUM [Concomitant]
     Dosage: 10 MEQ, OD
  9. SYNTHROID [Concomitant]
     Dosage: 200 MG, OD

REACTIONS (9)
  - Cystitis [Recovered/Resolved]
  - Pneumonia [Recovered/Resolved]
  - Bacteraemia [Recovering/Resolving]
  - Gastric ulcer [Recovering/Resolving]
  - Atrial fibrillation [Recovered/Resolved]
  - Anaemia [Recovering/Resolving]
  - Chills [Recovering/Resolving]
  - Drug dose omission [Not Recovered/Not Resolved]
  - Heart rate irregular [Unknown]
